FAERS Safety Report 8186718-6 (Version None)
Quarter: 2012Q1

REPORT INFORMATION
  Report Type: 
  Country: None (occurrence: None)
  Receive Date: 20120306
  Receipt Date: 20120223
  Transmission Date: 20120608
  Serious: No
  Sender: FDA-Public Use
  Company Number: FR-ASTELLAS-2011EU005569

PATIENT
  Sex: Male
  Weight: 63 kg

DRUGS (10)
  1. OMEPRAZOLE [Concomitant]
     Dosage: UNK
     Route: 065
  2. LEVOTHYROXINE SODIUM [Concomitant]
     Dosage: 125 UG, UNKNOWN/D
     Route: 048
  3. TRUVADA [Concomitant]
     Indication: HEPATITIS B
     Dosage: 1 DF, UID/QD
     Route: 048
     Dates: start: 20090501
  4. URSOLVAN [Concomitant]
     Indication: BILIARY CIRRHOSIS PRIMARY
     Dosage: 1 DF, TID
     Route: 048
     Dates: start: 20090501
  5. PREDNISONE TAB [Concomitant]
     Indication: PROPHYLAXIS AGAINST TRANSPLANT REJECTION
     Dosage: 5 MG, UNKNOWN/D
     Route: 048
     Dates: start: 20020601
  6. FERROUS SULFATE TAB [Concomitant]
     Dosage: UNK
     Route: 065
  7. ASPEGIC 1000 [Concomitant]
     Indication: ANTICOAGULANT THERAPY
     Dosage: 250 MG, UNKNOWN/D
     Route: 048
     Dates: start: 20020601
  8. TANGANIL [Concomitant]
     Dosage: UNK
     Route: 065
  9. TACROLIMUS [Suspect]
     Indication: LIVER TRANSPLANT
     Dosage: 4 MG, UNKNOWN/D
     Route: 048
     Dates: start: 20110809
  10. PROGRAF [Suspect]
     Indication: LIVER TRANSPLANT
     Dosage: 3 MG, UNKNOWN/D
     Route: 065
     Dates: start: 20020613

REACTIONS (2)
  - NAUSEA [None]
  - VERTIGO [None]
